FAERS Safety Report 9396187 (Version 1)
Quarter: 2013Q3

REPORT INFORMATION
  Report Type: Spontaneous
  Country: US (occurrence: US)
  Receive Date: 20130711
  Receipt Date: 20130711
  Transmission Date: 20140515
  Serious: Yes (Other)
  Sender: FDA-Public Use
  Company Number: US-BAXTER-2013BAX025873

PATIENT
  Age: 40 Year
  Sex: Female

DRUGS (5)
  1. GAMMAGARD LIQUID [Suspect]
     Indication: STIFF PERSON SYNDROME
  2. GAMMAGARD LIQUID [Suspect]
     Indication: OFF LABEL USE
  3. RITUXIMAB [Suspect]
     Indication: STIFF PERSON SYNDROME
  4. BACLOFEN [Suspect]
     Indication: PRODUCT USED FOR UNKNOWN INDICATION
  5. VALIUM [Suspect]
     Indication: PRODUCT USED FOR UNKNOWN INDICATION

REACTIONS (6)
  - Drug ineffective [Unknown]
  - Dyspnoea exertional [Unknown]
  - Dysarthria [Unknown]
  - Repetitive speech [Unknown]
  - Sedation [Unknown]
  - Fatigue [Unknown]
